FAERS Safety Report 7931473-5 (Version None)
Quarter: 2011Q4

REPORT INFORMATION
  Report Type: 
  Country: None (occurrence: None)
  Receive Date: 20111121
  Receipt Date: 20111110
  Transmission Date: 20120403
  Serious: Yes (Other)
  Sender: FDA-Public Use
  Company Number: US-ENDO PHARMACEUTICALS INC.-OPER20110297

PATIENT
  Age: 22 Year
  Sex: Male

DRUGS (1)
  1. OPANA ER [Suspect]
     Indication: DRUG ABUSE
     Dosage: 40 MG
     Route: 048

REACTIONS (5)
  - DRUG DEPENDENCE [None]
  - MALAISE [None]
  - DRUG DIVERSION [None]
  - WEIGHT DECREASED [None]
  - DRUG ABUSE [None]
